FAERS Safety Report 15791668 (Version 1)
Quarter: 2019Q1

REPORT INFORMATION
  Report Type: Spontaneous
  Country: US (occurrence: US)
  Receive Date: 20190105
  Receipt Date: 20190105
  Transmission Date: 20190417
  Serious: Yes (Other)
  Sender: FDA-Public Use
  Company Number: US-BION-007705

PATIENT
  Age: 80 Year
  Sex: Female
  Weight: 61 kg

DRUGS (1)
  1. ALEVE [Suspect]
     Active Substance: NAPROXEN SODIUM
     Indication: MUSCLE SPASMS
     Dosage: 1 AS NEEDED
     Route: 048
     Dates: start: 20181225

REACTIONS (7)
  - Wrong technique in product usage process [Not Recovered/Not Resolved]
  - Tinnitus [Recovered/Resolved]
  - Foreign body in respiratory tract [Recovered/Resolved]
  - Epinephrine decreased [Recovered/Resolved]
  - Product use in unapproved indication [Not Recovered/Not Resolved]
  - Choking [Recovered/Resolved]
  - Epinephrine increased [Recovered/Resolved]

NARRATIVE: CASE EVENT DATE: 20181225
